FAERS Safety Report 24660296 (Version 1)
Quarter: 2024Q4

REPORT INFORMATION
  Report Type: Spontaneous
  Country: CA (occurrence: CA)
  Receive Date: 20241125
  Receipt Date: 20241125
  Transmission Date: 20250115
  Serious: Yes (Hospitalization, Disabling, Other)
  Sender: DAIICHI
  Company Number: CA-ASTRAZENECA-202411CAN006297CA

PATIENT
  Age: 85 Year
  Sex: Female

DRUGS (1)
  1. TRASTUZUMAB DERUXTECAN [Suspect]
     Active Substance: TRASTUZUMAB DERUXTECAN
     Indication: Product used for unknown indication
     Dosage: 1 DOSAGE FORM (POWDER FOR SOLUTION FOR INFUSION)
     Route: 042

REACTIONS (6)
  - Cough [Unknown]
  - Dyspnoea [Unknown]
  - Hospitalisation [Unknown]
  - Interstitial lung disease [Unknown]
  - Loss of personal independence in daily activities [Unknown]
  - Pneumonitis [Unknown]
